FAERS Safety Report 6205593-X (Version None)
Quarter: 2009Q2

REPORT INFORMATION
  Report Type: 
  Country: None (occurrence: None)
  Receive Date: 20090527
  Receipt Date: 20090406
  Transmission Date: 20091009
  Serious: No
  Sender: FDA-Public Use
  Company Number: US-ABBOTT-09P-163-0566725-00

PATIENT
  Sex: Male
  Weight: 83.99 kg

DRUGS (9)
  1. SIMCOR [Suspect]
     Indication: BLOOD CHOLESTEROL INCREASED
     Dosage: 500/20 MILLIGRAMS
     Route: 048
     Dates: start: 20090208
  2. COUMADIN [Concomitant]
     Indication: ATRIAL FIBRILLATION
     Dosage: PER PATIENT'S /INR
     Route: 048
  3. AVAPRO [Concomitant]
     Indication: HYPERTENSION
     Route: 048
  4. METOPROLOL [Concomitant]
     Indication: HYPERTENSION
     Route: 048
  5. LEVOXYL [Concomitant]
     Indication: HYPOTHYROIDISM
     Route: 048
  6. LUMIGAN [Concomitant]
     Indication: GLAUCOMA
     Route: 047
  7. FLOMAX [Concomitant]
     Indication: PROSTATOMEGALY
     Route: 048
  8. ASPIRIN [Concomitant]
     Indication: PROPHYLAXIS
     Route: 048
     Dates: start: 20090201
  9. ASPIRIN [Concomitant]
     Indication: FLUSHING

REACTIONS (1)
  - BLOOD GLUCOSE INCREASED [None]
